FAERS Safety Report 7278523-X (Version None)
Quarter: 2011Q1

REPORT INFORMATION
  Report Type: 
  Country: None (occurrence: None)
  Receive Date: 20110207
  Receipt Date: 20110128
  Transmission Date: 20110831
  Serious: Yes (Other)
  Sender: FDA-Public Use
  Company Number: US-PERRIGO-11US000789

PATIENT
  Sex: Male
  Weight: 79.365 kg

DRUGS (1)
  1. PERMETHRIN [Suspect]
     Indication: ACARODERMATITIS
     Dosage: UNK
     Route: 061
     Dates: start: 20080917, end: 20081201

REACTIONS (5)
  - ADVERSE EVENT [None]
  - DELIRIUM [None]
  - DRUG ADMINISTRATION ERROR [None]
  - SKIN INFECTION [None]
  - SCAR [None]
